FAERS Safety Report 6065460-1 (Version None)
Quarter: 2009Q1

REPORT INFORMATION
  Report Type: 
  Country: None (occurrence: None)
  Receive Date: 20090204
  Receipt Date: 20090121
  Transmission Date: 20090719
  Serious: Yes (Death)
  Sender: FDA-Public Use
  Company Number: US-JNJFOC-20090105411

PATIENT
  Sex: Female
  Weight: 76.66 kg

DRUGS (8)
  1. DURAGESIC-100 [Suspect]
     Indication: DRUG USE FOR UNKNOWN INDICATION
     Route: 062
  2. CLONAZEPAM [Concomitant]
     Route: 017
  3. MOTRIN [Concomitant]
  4. ETHANOL [Concomitant]
  5. REMERON [Concomitant]
  6. MORPHINE [Concomitant]
  7. DESYREL [Concomitant]
  8. LEVETIRACETAM [Concomitant]

REACTIONS (2)
  - ARTERIOSCLEROSIS [None]
  - DRUG LEVEL INCREASED [None]
